FAERS Safety Report 8128219-7 (Version None)
Quarter: 2012Q1

REPORT INFORMATION
  Report Type: 
  Country: None (occurrence: None)
  Receive Date: 20120210
  Receipt Date: 20120130
  Transmission Date: 20120608
  Serious: Yes (Other)
  Sender: FDA-Public Use
  Company Number: FR-UCBSA-050370

PATIENT
  Age: 19 Year
  Sex: Female
  Weight: 89 kg

DRUGS (2)
  1. DIANE 35 [Concomitant]
     Indication: ORAL CONTRACEPTION
     Route: 048
  2. KEPPRA [Suspect]
     Indication: JUVENILE MYOCLONIC EPILEPSY
     Dosage: DAILY DOSE:1 GM
     Route: 048
     Dates: start: 20110413

REACTIONS (1)
  - PREGNANCY ON ORAL CONTRACEPTIVE [None]
